FAERS Safety Report 6732781-6 (Version None)
Quarter: 2010Q2

REPORT INFORMATION
  Report Type: 
  Country: None (occurrence: None)
  Receive Date: 20100519
  Receipt Date: 20100507
  Transmission Date: 20101027
  Serious: Yes (Other)
  Sender: FDA-Public Use
  Company Number: DE-CEPHALON-2010002808

PATIENT
  Sex: Male
  Weight: 77 kg

DRUGS (4)
  1. TREANDA [Suspect]
     Indication: MANTLE CELL LYMPHOMA
     Dates: start: 20091110
  2. RITUXIMAB [Suspect]
     Indication: MANTLE CELL LYMPHOMA
     Dates: start: 20091110
  3. FORTECORTIN [Suspect]
  4. FORTECORTIN [Suspect]
     Dates: start: 20091110

REACTIONS (4)
  - CIRCULATORY COLLAPSE [None]
  - DEPRESSED LEVEL OF CONSCIOUSNESS [None]
  - FALL [None]
  - SYNCOPE [None]
